FAERS Safety Report 7658607-4 (Version None)
Quarter: 2011Q3

REPORT INFORMATION
  Report Type: 
  Country: None (occurrence: None)
  Receive Date: 20110802
  Receipt Date: 20110718
  Transmission Date: 20111222
  Serious: Yes (Other)
  Sender: FDA-Public Use
  Company Number: 2011MA009110

PATIENT
  Sex: Male

DRUGS (1)
  1. METOCLOPRAMIDE [Suspect]
     Dates: start: 19990101, end: 20050101

REACTIONS (7)
  - TARDIVE DYSKINESIA [None]
  - ECONOMIC PROBLEM [None]
  - TREMOR [None]
  - EMOTIONAL DISORDER [None]
  - INJURY [None]
  - FAMILY STRESS [None]
  - DYSKINESIA [None]
